FAERS Safety Report 7775822-X (Version None)
Quarter: 2011Q3

REPORT INFORMATION
  Report Type: 
  Country: None (occurrence: None)
  Receive Date: 20110923
  Receipt Date: 20110915
  Transmission Date: 20111222
  Serious: Yes (Hospitalization, Other)
  Sender: FDA-Public Use
  Company Number: PHEH2006US14747

PATIENT
  Sex: Female

DRUGS (34)
  1. ZOMETA [Suspect]
     Dates: start: 20040101
  2. PRINIVIL [Concomitant]
     Dosage: 20 MG, QD
     Route: 048
  3. NADOLOL [Concomitant]
  4. PAXIL [Concomitant]
     Dosage: 10 MG, QD
  5. LORAZEPAM [Concomitant]
     Dosage: 0.5 MG, QD
     Dates: start: 20060101
  6. AMBIEN [Concomitant]
     Dosage: 25 MG,  1 A DAY
  7. REGLAN [Concomitant]
     Dosage: 5 MG, QHS
     Route: 048
  8. XELODA [Concomitant]
     Dosage: 2.5 MG, QD
     Route: 048
  9. CHEMOTHERAPEUTICS NOS [Suspect]
     Indication: BREAST CANCER METASTATIC
  10. FERROUS SULFATE TAB [Concomitant]
  11. CALCIUM CARBONATE [Concomitant]
  12. TRIAMTERENE [Concomitant]
     Dosage: 37.5 MG, QD
  13. DEXAMETHASONE [Concomitant]
     Dosage: 4 MG, BID
  14. FEMARA [Concomitant]
  15. AROMASIN [Concomitant]
  16. PRILOSEC [Concomitant]
     Dosage: 20 MG, QD
     Route: 048
  17. ACETAMINOPHEN [Concomitant]
     Dosage: 650 MG, Q4H
     Route: 048
  18. MILK OF MAGNESIA TAB [Concomitant]
  19. ZOFRAN [Concomitant]
     Dosage: 8 MG, TID
     Route: 048
  20. OXYCONTIN [Concomitant]
  21. LEVOFLOXACIN [Concomitant]
     Dosage: 500 MG, QD
  22. LIPITOR [Concomitant]
     Dosage: 10 MG, 1 A DAY
  23. VALTREX [Concomitant]
     Dosage: 500 MG, QD
     Dates: start: 20070601
  24. DECADRON [Concomitant]
     Dosage: 4 MG, Q12H
     Route: 048
  25. VICODIN [Concomitant]
  26. PAROXETINE HYDROCHLORIDE [Concomitant]
  27. TEMAZEPAM [Concomitant]
  28. VITAMIN B6 [Concomitant]
  29. PREMARIN [Concomitant]
     Dosage: 6.25 G, QD
  30. DILAUDID [Concomitant]
     Dosage: 2 MG, Q3H
     Route: 048
  31. HYDROMORPHONE HCL [Concomitant]
     Dosage: 2 MG, Q3H
     Route: 048
  32. OLANZAPINE [Concomitant]
     Dosage: 2.5 MG, QD
  33. LISINOPRIL [Concomitant]
  34. GLUCOSAMINE [Concomitant]

REACTIONS (59)
  - ERYTHEMA [None]
  - HYPERTENSION [None]
  - OSTEOPENIA [None]
  - TYPE 2 DIABETES MELLITUS [None]
  - BILIARY DILATATION [None]
  - MOUTH ULCERATION [None]
  - OSTEOPOROSIS [None]
  - SWELLING FACE [None]
  - VOMITING [None]
  - URINARY INCONTINENCE [None]
  - CONSTIPATION [None]
  - BREAST CANCER METASTATIC [None]
  - PAIN [None]
  - DECREASED INTEREST [None]
  - LYMPHADENITIS [None]
  - RENAL CYST [None]
  - EXOSTOSIS [None]
  - WEIGHT DECREASED [None]
  - GENERAL PHYSICAL HEALTH DETERIORATION [None]
  - CHOLELITHIASIS [None]
  - NEOPLASM MALIGNANT [None]
  - EXPOSED BONE IN JAW [None]
  - DRY MOUTH [None]
  - BACK PAIN [None]
  - BLADDER DYSFUNCTION [None]
  - DELIRIUM [None]
  - ANXIETY [None]
  - GAIT DISTURBANCE [None]
  - HYPERLIPIDAEMIA [None]
  - METASTASES TO BONE [None]
  - HEPATIC LESION [None]
  - BILE DUCT CANCER [None]
  - FISTULA DISCHARGE [None]
  - TAENIASIS [None]
  - SPINAL COLUMN STENOSIS [None]
  - PARANOIA [None]
  - STEVENS-JOHNSON SYNDROME [None]
  - LYMPHADENOPATHY [None]
  - GALLBLADDER DISORDER [None]
  - HEPATIC STEATOSIS [None]
  - LUNG NEOPLASM [None]
  - ARTHROPATHY [None]
  - SPINAL COMPRESSION FRACTURE [None]
  - MENTAL STATUS CHANGES [None]
  - FAECAL INCONTINENCE [None]
  - OSTEONECROSIS OF JAW [None]
  - RHEUMATOID ARTHRITIS [None]
  - CHRONIC OBSTRUCTIVE PULMONARY DISEASE [None]
  - INTERVERTEBRAL DISC PROTRUSION [None]
  - METASTASES TO MENINGES [None]
  - METASTASES TO LIVER [None]
  - CENTRAL NERVOUS SYSTEM LESION [None]
  - OBESITY [None]
  - HYPOAESTHESIA [None]
  - GINGIVAL DISORDER [None]
  - LUNG HYPERINFLATION [None]
  - HERPES SIMPLEX [None]
  - ARTERIOSCLEROSIS CORONARY ARTERY [None]
  - PARAPARESIS [None]
